FAERS Safety Report 6651426-7 (Version None)
Quarter: 2010Q1

REPORT INFORMATION
  Report Type: 
  Country: None (occurrence: None)
  Receive Date: 20100325
  Receipt Date: 20100312
  Transmission Date: 20100710
  Serious: Yes (Other)
  Sender: FDA-Public Use
  Company Number: TR-ELI_LILLY_AND_COMPANY-TR200912003579

PATIENT
  Sex: Male
  Weight: 26.5 kg

DRUGS (2)
  1. STRATTERA [Suspect]
     Indication: ATTENTION DEFICIT/HYPERACTIVITY DISORDER
     Dosage: 18 MG, 2/D
     Route: 048
  2. STRATTERA [Suspect]
     Dosage: 40 MG, UNK
     Dates: start: 20091203

REACTIONS (5)
  - DECREASED APPETITE [None]
  - DISTURBANCE IN ATTENTION [None]
  - DISTURBANCE IN SOCIAL BEHAVIOUR [None]
  - PYREXIA [None]
  - VOMITING [None]
